FAERS Safety Report 10257734 (Version 2)
Quarter: 2014Q2

REPORT INFORMATION
  Report Type: Spontaneous
  Country: CA (occurrence: CA)
  Receive Date: 20140625
  Receipt Date: 20140625
  Transmission Date: 20141212
  Serious: Yes (Other)
  Sender: FDA-Public Use
  Company Number: CA-AMGEN-CANSP2014032569

PATIENT
  Age: 34 Year
  Sex: Female

DRUGS (3)
  1. ENBREL [Suspect]
     Indication: PSORIATIC ARTHROPATHY
     Dosage: 50 MG, QWK
     Route: 058
     Dates: start: 201312, end: 201404
  2. METHOTREXATE [Concomitant]
     Indication: PSORIATIC ARTHROPATHY
     Dosage: 25 MG, QWK
     Route: 058
  3. PLAQUENIL                          /00072603/ [Concomitant]
     Indication: PSORIATIC ARTHROPATHY
     Dosage: 400 MG, QD
     Route: 058

REACTIONS (7)
  - Hepatic adenoma [Unknown]
  - Hepatic lesion [Unknown]
  - Focal nodular hyperplasia [Unknown]
  - Hepatic mass [Unknown]
  - Abdominal pain upper [Unknown]
  - Hepatic neoplasm [Unknown]
  - C-reactive protein increased [Unknown]
